FAERS Safety Report 10041166 (Version 3)
Quarter: 2014Q2

REPORT INFORMATION
  Report Type: Report from Study
  Country: AU (occurrence: AU)
  Receive Date: 20140327
  Receipt Date: 20140429
  Transmission Date: 20141212
  Serious: Yes (Hospitalization)
  Sender: FDA-Public Use
  Company Number: AU-009507513-1302AUS002596

PATIENT
  Age: 73 Year
  Sex: Female
  Weight: 66 kg

DRUGS (13)
  1. DEXAMETHASONE [Suspect]
     Indication: WOUND DEHISCENCE
     Dosage: 20 MG, QW
     Route: 048
     Dates: start: 20120801, end: 20130124
  2. LENALIDOMIDE [Suspect]
     Indication: WOUND DEHISCENCE
     Dosage: 10 MG, QD
     Route: 048
     Dates: start: 20120801, end: 20130123
  3. OMEPRAZOLE [Concomitant]
     Indication: PROPHYLAXIS AGAINST GASTROINTESTINAL ULCER
     Dosage: 40 MG, QD
     Route: 048
     Dates: start: 20110421
  4. CARVEDILOL [Concomitant]
     Indication: HYPERTENSION
     Dosage: 3.13 MG, BID
     Route: 048
     Dates: start: 201111
  5. ATORVASTATIN [Concomitant]
     Indication: HYPOLIPIDAEMIA
     Dosage: 60 MG, QD
     Route: 048
     Dates: start: 201110
  6. COLOXYL WITH SENNA [Concomitant]
     Indication: CONSTIPATION PROPHYLAXIS
     Dosage: TOTAL DAILY DOSE 4 TABLETS, PRN
     Route: 048
     Dates: start: 20111124
  7. ACETAMINOPHEN [Concomitant]
     Indication: PAIN MANAGEMENT
     Dosage: TOTAL DAILY DOSE 4000 MG, PRN
     Route: 048
     Dates: start: 20111101
  8. METOCLOPRAMIDE [Concomitant]
     Indication: NAUSEA
     Dosage: TOTAL DAILY DOSE 30 MG, PRN
     Route: 048
     Dates: start: 20111101
  9. ASPIRIN [Concomitant]
     Indication: PLATELET AGGREGATION INHIBITION
     Dosage: 100 MG, QD
     Route: 048
     Dates: start: 201111
  10. BLINDED VARICELLA-ZOSTER VIRUS VACCINE INACTIVATED (OKA/MERCK) [Suspect]
     Indication: PROPHYLAXIS
     Route: 058
     Dates: start: 20120517, end: 20120517
  11. BLINDED VARICELLA-ZOSTER VIRUS VACCINE INACTIVATED (OKA/MERCK) [Suspect]
     Route: 058
     Dates: start: 20120216, end: 20120216
  12. BLINDED VARICELLA-ZOSTER VIRUS VACCINE INACTIVATED (OKA/MERCK) [Suspect]
     Route: 058
     Dates: start: 20120327, end: 20120327
  13. BLINDED VARICELLA-ZOSTER VIRUS VACCINE INACTIVATED (OKA/MERCK) [Suspect]
     Route: 058
     Dates: start: 20120419, end: 20120419

REACTIONS (1)
  - Wound dehiscence [Recovered/Resolved with Sequelae]
